FAERS Safety Report 4287298-8 (Version None)
Quarter: 2004Q1

REPORT INFORMATION
  Report Type: 
  Country: None (occurrence: None)
  Receive Date: 20040205
  Receipt Date: 20040122
  Transmission Date: 20041129
  Serious: Yes (Death, Hospitalization, Other)
  Sender: FDA-Public Use
  Company Number: US-SHR-04-020108

PATIENT
  Age: 53 Year
  Sex: Male

DRUGS (6)
  1. CAMPATH [Suspect]
     Indication: STEM CELL TRANSPLANT
     Dosage: SEE IMAGE
     Route: 042
     Dates: start: 20030618
  2. DONOR LYMPHOCYTE [Suspect]
     Indication: DELAYED ENGRAFTMENT
     Dates: start: 20030925, end: 20030925
  3. FLUDARA [Suspect]
     Indication: STEM CELL TRANSPLANT
     Dosage: 30 MG/M2 DAYS -4,-3,-2, INTRAVENOUS
     Route: 042
     Dates: start: 20030701
  4. TOTAL BODY IRRADIATION [Concomitant]
     Dosage: 200 CGY DAY
     Dates: start: 20030701
  5. FK 506 (TACROLIMUS) [Concomitant]
  6. MMF [Concomitant]

REACTIONS (21)
  - ARRHYTHMIA [None]
  - CELLULITIS [None]
  - CYTOMEGALOVIRUS INFECTION [None]
  - DEHYDRATION [None]
  - DELAYED ENGRAFTMENT [None]
  - ENDOCARDITIS BACTERIAL [None]
  - GLYCOPEPTIDE ANTIBIOTIC RESISTANT ENTEROCOCCAL INFECTION [None]
  - GRAFT VERSUS HOST DISEASE [None]
  - HAEMATOCHEZIA [None]
  - HAEMODIALYSIS [None]
  - HAEMOLYTIC ANAEMIA [None]
  - HEPATIC FAILURE [None]
  - KLEBSIELLA INFECTION [None]
  - PANCYTOPENIA [None]
  - PNEUMONIA KLEBSIELLA [None]
  - PULMONARY OEDEMA [None]
  - RASH MACULO-PAPULAR [None]
  - RENAL FAILURE ACUTE [None]
  - SEPSIS [None]
  - STAPHYLOCOCCAL INFECTION [None]
  - STREPTOCOCCAL INFECTION [None]
